FAERS Safety Report 7222491-3 (Version None)
Quarter: 2011Q1

REPORT INFORMATION
  Report Type: 
  Country: None (occurrence: None)
  Receive Date: 20110106
  Receipt Date: 20110106
  Transmission Date: 20110831
  Serious: Yes (Other)
  Sender: FDA-Public Use
  Company Number: None

PATIENT
  Age: 77 Year
  Sex: Female
  Weight: 75 kg

DRUGS (1)
  1. FERAHEME [Suspect]
     Dosage: 510 MG ONCE IV
     Route: 042
     Dates: start: 20101227, end: 20101227

REACTIONS (6)
  - HEADACHE [None]
  - DIZZINESS [None]
  - BACK PAIN [None]
  - PAIN IN EXTREMITY [None]
  - PRURITUS GENERALISED [None]
  - CHEST PAIN [None]
